FAERS Safety Report 8307928-0 (Version None)
Quarter: 2012Q2

REPORT INFORMATION
  Report Type: 
  Country: None (occurrence: None)
  Receive Date: 20120424
  Receipt Date: 20120418
  Transmission Date: 20120825
  Serious: Yes (Other)
  Sender: FDA-Public Use
  Company Number: US-GLAXOSMITHKLINE-A0932213A

PATIENT
  Age: 75 Year
  Sex: Female
  Weight: 54.4 kg

DRUGS (19)
  1. REVATIO [Concomitant]
     Dosage: 20MG THREE TIMES PER DAY
     Route: 048
  2. CELEBREX [Concomitant]
     Dosage: 200MG PER DAY
  3. IRON [Concomitant]
     Indication: BLOOD IRON ABNORMAL
     Route: 048
  4. PREMARIN [Concomitant]
     Dosage: .625MG PER DAY
  5. PREDNISONE TAB [Concomitant]
     Dosage: 10MG PER DAY
  6. FUROSEMIDE [Concomitant]
     Dosage: 80MG PER DAY
  7. ALLOPURINOL [Concomitant]
     Dosage: 300MG PER DAY
  8. SPIRIVA [Concomitant]
     Dosage: 1PUFF PER DAY
  9. WARFARIN SODIUM [Concomitant]
     Dosage: 4MG AS DIRECTED
     Route: 048
  10. CALCIUM [Concomitant]
     Dosage: 500MG PER DAY
  11. FLOLAN [Suspect]
     Indication: PULMONARY ARTERIAL HYPERTENSION
     Route: 042
     Dates: start: 20061122
  12. TRACLEER [Concomitant]
     Dosage: 1TAB TWICE PER DAY
  13. OXYGEN [Concomitant]
     Dosage: 6L CONTINUOUS
  14. VICODIN ES [Concomitant]
     Dosage: 2TAB AS REQUIRED
     Route: 048
  15. TYLENOL (CAPLET) [Concomitant]
     Dosage: 325MG AS REQUIRED
  16. VITAMIN D [Concomitant]
     Dosage: 50000UNIT WEEKLY
  17. ALPRAZOLAM [Concomitant]
     Dosage: 1MG FOUR TIMES PER DAY
  18. KLOR-CON [Concomitant]
     Dosage: 10MEQ AS DIRECTED
  19. SYMBICORT [Concomitant]
     Dosage: 2PUFF TWICE PER DAY

REACTIONS (6)
  - OEDEMA [None]
  - BLOOD IRON DECREASED [None]
  - HEADACHE [None]
  - DIZZINESS [None]
  - CARDIOGENIC SHOCK [None]
  - EPISTAXIS [None]
